FAERS Safety Report 18981800 (Version 3)
Quarter: 2021Q2

REPORT INFORMATION
  Report Type: Spontaneous
  Country: US (occurrence: US)
  Receive Date: 20210308
  Receipt Date: 20210504
  Transmission Date: 20210717
  Serious: No
  Sender: FDA-Public Use
  Company Number: US-BAYER-2021-089579

PATIENT
  Sex: Male

DRUGS (2)
  1. JIVI [Suspect]
     Active Substance: DAMOCTOCOG ALFA PEGOL
     Indication: FACTOR VIII DEFICIENCY
     Dosage: 3000 IU, ONCE ? LAST DOSE PRIOR TO EVENT^S ONSET
     Dates: start: 20210225, end: 20210225
  2. JIVI [Suspect]
     Active Substance: DAMOCTOCOG ALFA PEGOL
     Indication: FACTOR VIII DEFICIENCY
     Dosage: 3000 IU
     Route: 042

REACTIONS (2)
  - Infusion site warmth [Recovered/Resolved]
  - Malaise [None]

NARRATIVE: CASE EVENT DATE: 20210225
